FAERS Safety Report 7359416-6 (Version None)
Quarter: 2011Q1

REPORT INFORMATION
  Report Type: 
  Country: None (occurrence: None)
  Receive Date: 20110317
  Receipt Date: 20091231
  Transmission Date: 20110831
  Serious: No
  Sender: FDA-Public Use
  Company Number: US-PFIZER INC-2009307661

PATIENT
  Sex: Female
  Weight: 81.633 kg

DRUGS (5)
  1. PROTONIX [Concomitant]
     Dosage: UNK
  2. NORVASC [Suspect]
     Indication: LABILE HYPERTENSION
     Dosage: 2.5 MG, 2X/DAY
     Dates: start: 20080101
  3. EDECRIN [Suspect]
     Dates: start: 20080101, end: 20080101
  4. BUSPAR [Concomitant]
     Dosage: UNK
  5. KLONOPIN [Concomitant]
     Dosage: UNK

REACTIONS (3)
  - MUSCLE SPASMS [None]
  - FLUSHING [None]
  - ABDOMINAL DISCOMFORT [None]
